FAERS Safety Report 16304360 (Version 3)
Quarter: 2019Q3

REPORT INFORMATION
  Report Type: Spontaneous
  Country: US (occurrence: US)
  Receive Date: 20190513
  Receipt Date: 20190903
  Transmission Date: 20191004
  Serious: No
  Sender: FDA-Public Use
  Company Number: US-PFIZER INC-2019197746

PATIENT
  Age: 88 Year
  Sex: Female

DRUGS (3)
  1. PROPARACAINE HCL [Suspect]
     Active Substance: PROPARACAINE HYDROCHLORIDE
     Dosage: UNK
  2. P-PHENYLENEDIAMINE [Suspect]
     Active Substance: P-PHENYLENEDIAMINE
     Dosage: UNK
  3. NEOMYCIN SULFATE. [Suspect]
     Active Substance: NEOMYCIN SULFATE
     Dosage: UNK

REACTIONS (1)
  - Drug hypersensitivity [Unknown]
